FAERS Safety Report 21885013 (Version 1)
Quarter: 2023Q1

REPORT INFORMATION
  Report Type: Spontaneous
  Country: AT (occurrence: AT)
  Receive Date: 20230119
  Receipt Date: 20230119
  Transmission Date: 20230417
  Serious: Yes (Other)
  Sender: FDA-Public Use
  Company Number: None

PATIENT
  Age: 28 Year
  Sex: Female

DRUGS (1)
  1. CLINDAMYCIN [Suspect]
     Active Substance: CLINDAMYCIN
     Indication: Infection
     Dosage: 150 MG, (ACCORDING TO TECHNICAL INFORMATION)
     Dates: start: 20221123, end: 20221123

REACTIONS (6)
  - Type I hypersensitivity [Unknown]
  - Pruritus [Unknown]
  - Dyspnoea [Unknown]
  - Lip swelling [Unknown]
  - Drug eruption [Unknown]
  - Dizziness [Unknown]

NARRATIVE: CASE EVENT DATE: 20221123
